FAERS Safety Report 25192736 (Version 1)
Quarter: 2025Q2

REPORT INFORMATION
  Report Type: Spontaneous
  Country: PT (occurrence: PT)
  Receive Date: 20250414
  Receipt Date: 20250414
  Transmission Date: 20250717
  Serious: Yes (Death, Other)
  Sender: AMGEN
  Company Number: PT-AMGEN-PRTSP2025070138

PATIENT

DRUGS (3)
  1. PROLIA [Suspect]
     Active Substance: DENOSUMAB
     Indication: Low turnover osteopathy
     Route: 065
  2. PROLIA [Suspect]
     Active Substance: DENOSUMAB
     Indication: Osteoporosis
  3. PROLIA [Suspect]
     Active Substance: DENOSUMAB
     Indication: Bone disorder

REACTIONS (4)
  - Infection [Fatal]
  - Pathological fracture [Unknown]
  - Therapy cessation [Unknown]
  - Off label use [Unknown]
